FAERS Safety Report 5949473-3 (Version None)
Quarter: 2008Q4

REPORT INFORMATION
  Report Type: 
  Country: None (occurrence: None)
  Receive Date: 20081112
  Receipt Date: 20081104
  Transmission Date: 20090506
  Serious: Yes (Other)
  Sender: FDA-Public Use
  Company Number: PHHY2008AU27080

PATIENT
  Sex: Female

DRUGS (1)
  1. GLEEVEC [Suspect]
     Indication: CHRONIC MYELOID LEUKAEMIA
     Dosage: UNK
     Dates: start: 20070320

REACTIONS (5)
  - ABDOMINAL DISTENSION [None]
  - ABNORMAL FAECES [None]
  - CHANGE OF BOWEL HABIT [None]
  - DIARRHOEA [None]
  - FAECAL INCONTINENCE [None]
